FAERS Safety Report 7718405-X (Version None)
Quarter: 2011Q3

REPORT INFORMATION
  Report Type: 
  Country: None (occurrence: None)
  Receive Date: 20110830
  Receipt Date: 20110825
  Transmission Date: 20111222
  Serious: No
  Sender: FDA-Public Use
  Company Number: US-PFIZER INC-2011199240

PATIENT
  Sex: Male
  Weight: 81.2 kg

DRUGS (1)
  1. DEPO-TESTOSTERONE [Suspect]
     Indication: HORMONE REPLACEMENT THERAPY
     Dosage: 50 MG, WEEKLY
     Dates: start: 20081101

REACTIONS (2)
  - POOR QUALITY DRUG ADMINISTERED [None]
  - BLOOD TESTOSTERONE DECREASED [None]
